FAERS Safety Report 24221249 (Version 1)
Quarter: 2024Q3

REPORT INFORMATION
  Report Type: Spontaneous
  Country: GB (occurrence: GB)
  Receive Date: 20240819
  Receipt Date: 20240819
  Transmission Date: 20241016
  Serious: Yes (Other)
  Sender: DEXCEL
  Company Number: None

PATIENT
  Age: 76 Year
  Sex: Female
  Weight: 64 kg

DRUGS (4)
  1. OMEPRAZOLE [Suspect]
     Active Substance: OMEPRAZOLE
     Indication: Reflux laryngitis
     Dates: start: 20230501
  2. OMEPRAZOLE [Concomitant]
     Active Substance: OMEPRAZOLE
     Indication: Reflux laryngitis
     Dosage: TAKE ONE DAILY WHEN REQUIRED FOR SILENT REFLUX
     Dates: start: 20230322, end: 20240809
  3. VITAMIN B12 [Concomitant]
     Active Substance: CYANOCOBALAMIN
  4. GAVISCON [Concomitant]
     Active Substance: ALUMINUM HYDROXIDE\MAGNESIUM CARBONATE

REACTIONS (4)
  - Joint swelling [Recovered/Resolved]
  - Peripheral swelling [Recovered/Resolved]
  - Balance disorder [Recovered/Resolved]
  - Malaise [Recovered/Resolved]

NARRATIVE: CASE EVENT DATE: 20230501
